FAERS Safety Report 9055281 (Version 1)
Quarter: 2013Q1

REPORT INFORMATION
  Report Type: Other
  Country: US (occurrence: US)
  Receive Date: 20130206
  Receipt Date: 20130206
  Transmission Date: 20140127
  Serious: Yes (Hospitalization)
  Sender: FDA-Public Use
  Company Number: US-SHIRE-ALL1-2013-00553

PATIENT
  Sex: 0

DRUGS (1)
  1. VPRIV [Suspect]
     Indication: GAUCHER^S DISEASE
     Dosage: 3600 IU, OTHER (BI-MONTHLY)
     Route: 041
     Dates: start: 20110323

REACTIONS (2)
  - Haemoglobin decreased [Not Recovered/Not Resolved]
  - Iron deficiency [Not Recovered/Not Resolved]
